FAERS Safety Report 6102416-4 (Version None)
Quarter: 2009Q1

REPORT INFORMATION
  Report Type: 
  Country: None (occurrence: None)
  Receive Date: 20090304
  Receipt Date: 20090218
  Transmission Date: 20090719
  Serious: Yes (Hospitalization, Other)
  Sender: FDA-Public Use
  Company Number: FR-ELI_LILLY_AND_COMPANY-FR200902004593

PATIENT
  Age: 77 Year
  Sex: Female

DRUGS (2)
  1. FORTEO [Suspect]
     Indication: OSTEOPOROSIS
     Dosage: 20 UG, DAILY (1/D)
     Dates: start: 20080215, end: 20081221
  2. FORTEO [Suspect]
     Dosage: 20 UG, UNK
     Dates: start: 20081224

REACTIONS (5)
  - DEHYDRATION [None]
  - FALL [None]
  - GASTROENTERITIS [None]
  - LOSS OF CONSCIOUSNESS [None]
  - MALNUTRITION [None]
